FAERS Safety Report 12510082 (Version 1)
Quarter: 2016Q2

REPORT INFORMATION
  Report Type: Report from Study
  Country: BR (occurrence: BR)
  Receive Date: 20160629
  Receipt Date: 20160629
  Transmission Date: 20160815
  Serious: Yes (Other)
  Sender: FDA-Public Use
  Company Number: BR-ABBVIE-16K-020-1659755-00

PATIENT
  Age: 55 Year
  Sex: Female
  Weight: 66 kg

DRUGS (2)
  1. HUMIRA [Suspect]
     Active Substance: ADALIMUMAB
     Indication: PSORIASIS
     Route: 058
     Dates: start: 20160423
  2. VASELINE PURE [Concomitant]
     Active Substance: PETROLATUM
     Indication: DRY SKIN
     Dosage: 3 TIMES A DAY ON HANDS AND FEET
     Route: 061

REACTIONS (11)
  - Peripheral swelling [Not Recovered/Not Resolved]
  - Tooth infection [Recovered/Resolved]
  - Gingival pain [Not Recovered/Not Resolved]
  - Tooth disorder [Recovering/Resolving]
  - Headache [Recovered/Resolved]
  - Skin discolouration [Not Recovered/Not Resolved]
  - Loose tooth [Not Recovered/Not Resolved]
  - Pruritus [Not Recovered/Not Resolved]
  - Nervousness [Unknown]
  - Vasculitis cerebral [Unknown]
  - Headache [Recovered/Resolved]

NARRATIVE: CASE EVENT DATE: 2016
